FAERS Safety Report 7909029-X (Version None)
Quarter: 2011Q4

REPORT INFORMATION
  Report Type: 
  Country: None (occurrence: None)
  Receive Date: 20111111
  Receipt Date: 20111109
  Transmission Date: 20120403
  Serious: Yes (Life-Threatening, Other)
  Sender: FDA-Public Use
  Company Number: JP-PFIZER INC-2011273701

PATIENT
  Age: 84 Year
  Sex: Female

DRUGS (1)
  1. SPIRONOLACTONE [Suspect]
     Indication: CARDIAC FAILURE CHRONIC

REACTIONS (2)
  - BLOOD CREATININE INCREASED [None]
  - HYPERKALAEMIA [None]
